FAERS Safety Report 6995918-X (Version None)
Quarter: 2010Q3

REPORT INFORMATION
  Report Type: 
  Country: None (occurrence: None)
  Receive Date: 20100918
  Receipt Date: 20081031
  Transmission Date: 20110219
  Serious: No
  Sender: FDA-Public Use
  Company Number: US-WYE-H06651808

PATIENT

DRUGS (2)
  1. EFFEXOR XR [Suspect]
     Dosage: UNSPECIFIED
     Route: 065
  2. PRISTIQ [Suspect]
     Dosage: UNSPECIFIED
     Route: 065

REACTIONS (3)
  - ANXIETY [None]
  - DRUG WITHDRAWAL SYNDROME [None]
  - FEELING ABNORMAL [None]
